FAERS Safety Report 8622331-1 (Version None)
Quarter: 2012Q3

REPORT INFORMATION
  Report Type: 
  Country: None (occurrence: None)
  Receive Date: 20120827
  Receipt Date: 20120816
  Transmission Date: 20120928
  Serious: Yes (Other)
  Sender: FDA-Public Use
  Company Number: US-BIOGENIDEC-2012BI032778

PATIENT
  Age: 60 Year
  Sex: Female

DRUGS (4)
  1. INTERFERONS (NOS) [Concomitant]
  2. COPAXONE [Concomitant]
     Dates: start: 20060101
  3. HORMONE REPLACEMENT THERAPY [Concomitant]
  4. AVONEX [Suspect]
     Indication: MULTIPLE SCLEROSIS
     Route: 030
     Dates: start: 19981001

REACTIONS (1)
  - BREAST CANCER [None]
